FAERS Safety Report 19496187 (Version 1)
Quarter: 2021Q3

REPORT INFORMATION
  Report Type: Report from Study
  Country: IT (occurrence: IT)
  Receive Date: 20210706
  Receipt Date: 20210706
  Transmission Date: 20211014
  Serious: Yes (Hospitalization)
  Sender: FDA-Public Use
  Company Number: IT-ADC THERAPEUTICS SA-2021-AT402-00018

PATIENT
  Age: 78 Year
  Sex: Male
  Weight: 63 kg

DRUGS (9)
  1. LAMIVUDINE. [Concomitant]
     Active Substance: LAMIVUDINE
     Dosage: UNK
  2. BACTRIM [Concomitant]
     Active Substance: SULFAMETHOXAZOLE\TRIMETHOPRIM
  3. RAMIPRIL. [Concomitant]
     Active Substance: RAMIPRIL
  4. ACYCLOVIR [ACICLOVIR] [Concomitant]
     Active Substance: ACYCLOVIR
  5. LONCASTUXIMAB TESIRINE. [Suspect]
     Active Substance: LONCASTUXIMAB TESIRINE
     Indication: LYMPHOMA
     Dosage: 60 MILLIGRAM/KILOGRAM, Q3WK
     Route: 042
     Dates: start: 20201229, end: 20210119
  6. ALLOPURINOL. [Concomitant]
     Active Substance: ALLOPURINOL
  7. LAMIVUDINE. [Concomitant]
     Active Substance: LAMIVUDINE
     Dosage: UNK
  8. IMBRUVICA [Suspect]
     Active Substance: IBRUTINIB
     Indication: LYMPHOMA
     Dosage: 560 MICROGRAM/KILOGRAM, QD
     Route: 048
     Dates: start: 20201229, end: 20210202
  9. PANTOPRAZOLE [Concomitant]
     Active Substance: PANTOPRAZOLE

REACTIONS (2)
  - Transaminases increased [Recovered/Resolved]
  - Diarrhoea [Recovered/Resolved]

NARRATIVE: CASE EVENT DATE: 20210202
